FAERS Safety Report 14432323 (Version 1)
Quarter: 2018Q1

REPORT INFORMATION
  Report Type: Spontaneous
  Country: ES (occurrence: ES)
  Receive Date: 20180124
  Receipt Date: 20180124
  Transmission Date: 20180509
  Serious: Yes (Other)
  Sender: FDA-Public Use
  Company Number: ES-009507513-1801ESP007268

PATIENT
  Age: 86 Year
  Sex: Female

DRUGS (7)
  1. GLIMEPIRIDE. [Concomitant]
     Active Substance: GLIMEPIRIDE
     Indication: TYPE 2 DIABETES MELLITUS
     Dosage: DOSE UNIT FREQUENCY: 2 MG-MILIGRAMS; INTAKE DOSE: 2 MG-MILIGRAMS
     Route: 048
  2. NOLOTIL (DIPYRONE) [Concomitant]
     Active Substance: METAMIZOLE
     Dosage: DOSE UNIT FREQUENCY: 575 MG-MILIGRAMS; INTAKE DOSE: 575 MG-MILIGRAMS
     Route: 048
     Dates: start: 201702, end: 20170321
  3. NOLOTIL (DIPYRONE) [Suspect]
     Active Substance: METAMIZOLE
     Dosage: DOSE UNIT FREQUENCY: 1150 MG-MILIGRAMS; INTAKE DOSE: 575 MG-MILIGRAMS
     Route: 048
     Dates: start: 20170321, end: 20170322
  4. OMEPRAZOLE. [Concomitant]
     Active Substance: OMEPRAZOLE
     Dosage: DOSE UNIT FREQUENCY: 20 MG-MILIGRAMS; INTAKE DOSE: 20 MG-MILIGRAMS
     Route: 048
  5. SITAGLIPTIN PHOSPHATE [Suspect]
     Active Substance: SITAGLIPTIN PHOSPHATE
     Indication: TYPE 2 DIABETES MELLITUS
     Dosage: DOSE UNIT FREQUENCY: 50 MG-MILIGRAMS; INTAKE DOSE: 50 MG-MILIGRAMS
     Route: 048
     Dates: start: 201702, end: 20170322
  6. ENALAPRIL MALEATE. [Suspect]
     Active Substance: ENALAPRIL MALEATE
     Indication: HYPERTENSION
     Dosage: DOSE UNIT FREQUENCY: 10 MG-MILIGRAMS; INTAKE DOSE: 10 MG-MILIGRAMS
     Route: 048
     Dates: start: 201702, end: 20170322
  7. LORMETAZEPAM [Concomitant]
     Active Substance: LORMETAZEPAM
     Dosage: DOSE UNIT FREQUENCY: 2 MG-MILIGRAMS; INTAKE DOSE: 2 MG-MILIGRAMS
     Route: 048

REACTIONS (4)
  - Hypotension [Recovered/Resolved]
  - Angioedema [Recovered/Resolved]
  - Urticaria [Recovered/Resolved]
  - Pruritus [Recovered/Resolved]

NARRATIVE: CASE EVENT DATE: 20170321
